FAERS Safety Report 9223034 (Version 2)
Quarter: 2013Q3

REPORT INFORMATION
  Report Type: Spontaneous
  Country: US (occurrence: US)
  Receive Date: 20130410
  Receipt Date: 20130906
  Transmission Date: 20140515
  Serious: Yes (Hospitalization, Other)
  Sender: FDA-Public Use
  Company Number: US-BAYER-2013-045127

PATIENT
  Age: 26 Year
  Sex: Female

DRUGS (20)
  1. YAZ [Suspect]
  2. YASMIN [Suspect]
     Dosage: UNK
     Dates: start: 2008, end: 2009
  3. YASMIN [Suspect]
  4. OCELLA [Suspect]
     Dosage: UNK
     Dates: start: 2008, end: 2009
  5. OCELLA [Suspect]
  6. TRAZODONE HCL [Concomitant]
     Dosage: 100 MG, UNK
  7. APAP [Concomitant]
     Dosage: 300-30 MG
  8. KLONOPIN [Concomitant]
     Dosage: 2 MG 2 TIMES A DAY AND 1 MG AT BEDTIME
     Route: 048
  9. SOMA [Concomitant]
     Dosage: 350 MG, TID
     Route: 048
  10. SEROQUEL [Concomitant]
     Dosage: 100 MG E TIMES A DAY AND 300 MG ONCE A DAY AT BEDTIME
     Route: 048
  11. ALBUTEROL [Concomitant]
  12. ATROVENT [Concomitant]
  13. CLONAZEPAM [Concomitant]
  14. CEPACOL [Concomitant]
  15. PERCOCET [Concomitant]
  16. LEVAQUIN [Concomitant]
  17. DILAUDID [Concomitant]
     Indication: PAIN
  18. NICODERM [Concomitant]
  19. ORTHO TRICYCLEN [Concomitant]
     Dosage: UNK
     Dates: start: 20050503
  20. YAZ [Suspect]
     Dosage: UNK
     Dates: start: 2008, end: 2009

REACTIONS (11)
  - Thrombosis [None]
  - Deep vein thrombosis [Recovered/Resolved]
  - Pulmonary embolism [Recovered/Resolved]
  - Pulmonary embolism [None]
  - Pain [Recovered/Resolved]
  - Abdominal pain [None]
  - Injury [Recovered/Resolved]
  - Emotional distress [None]
  - General physical health deterioration [Recovered/Resolved]
  - Anxiety [None]
  - Pain [None]
